FAERS Safety Report 9387342 (Version 1)
Quarter: 2013Q3

REPORT INFORMATION
  Report Type: Spontaneous
  Country: US (occurrence: None)
  Receive Date: 20130702
  Receipt Date: 20130702
  Transmission Date: 20140515
  Serious: Yes (Other)
  Sender: FDA-Public Use
  Company Number: AUR-APL-2013-05446

PATIENT
  Age: 27 Year
  Sex: Male

DRUGS (3)
  1. OLANZAPINE (OLANZAPINE) [Suspect]
     Indication: SCHIZOPHRENIA
  2. QUETIAPINE [Suspect]
     Indication: SCHIZOPHRENIA
  3. ZIPRASIDONE HCL [Suspect]
     Indication: SCHIZOPHRENIA

REACTIONS (12)
  - Weight increased [None]
  - Drug ineffective [None]
  - Oromandibular dystonia [None]
  - Swollen tongue [None]
  - Social avoidant behaviour [None]
  - Paranoia [None]
  - Hallucination, auditory [None]
  - Psychotic disorder [None]
  - Activities of daily living impaired [None]
  - Dysphagia [None]
  - Speech disorder [None]
  - Dyspnoea [None]
